FAERS Safety Report 13922109 (Version 1)
Quarter: 2017Q3

REPORT INFORMATION
  Report Type: Spontaneous
  Country: US (occurrence: US)
  Receive Date: 20170830
  Receipt Date: 20170830
  Transmission Date: 20171127
  Serious: No
  Sender: FDA-Public Use
  Company Number: US-TARO-2016TAR00691

PATIENT
  Age: 45 Year
  Sex: Male
  Weight: 115.65 kg

DRUGS (21)
  1. ALLOPURINOL. [Concomitant]
     Active Substance: ALLOPURINOL
  2. MAGNESIUM OXIDE. [Concomitant]
     Active Substance: MAGNESIUM OXIDE
  3. LOSARTAN. [Concomitant]
     Active Substance: LOSARTAN
  4. LANTUS [Concomitant]
     Active Substance: INSULIN GLARGINE
  5. LEVOTHYROXINE. [Concomitant]
     Active Substance: LEVOTHYROXINE
  6. WARFARIN SODIUM TABLETS USP 10MG [Suspect]
     Active Substance: WARFARIN SODIUM
     Indication: CARDIAC OPERATION
     Dosage: 1X/DAY; TOTAL OF 10 MG
     Route: 048
     Dates: start: 20160701, end: 20160724
  7. WARFARIN SODIUM TABLETS USP 10MG [Suspect]
     Active Substance: WARFARIN SODIUM
     Dosage: COMBINATION OF 5 MG AND 10 MG WARFARIN TO MAKE A 10 MG DAILY DOSE
     Dates: start: 20160701, end: 20160724
  8. GLIMEPIRIDE. [Concomitant]
     Active Substance: GLIMEPIRIDE
  9. DAILY MULTIVITAMIN [Concomitant]
     Active Substance: VITAMINS
  10. SAW PALMETTO [Concomitant]
     Active Substance: HERBALS\SAW PALMETTO
  11. WARFARIN SODIUM TABLETS USP 5MG [Suspect]
     Active Substance: WARFARIN SODIUM
     Indication: HEART VALVE REPLACEMENT
     Dosage: 7.5 MG, 1X/DAY
     Dates: start: 20160629, end: 20160701
  12. METFORMIN [Concomitant]
     Active Substance: METFORMIN HYDROCHLORIDE
  13. CARVEDILOL. [Concomitant]
     Active Substance: CARVEDILOL
  14. ATORVASTATIN [Concomitant]
     Active Substance: ATORVASTATIN
  15. WARFARIN SODIUM TABLETS USP 5MG [Suspect]
     Active Substance: WARFARIN SODIUM
     Indication: CARDIAC OPERATION
     Dosage: 5MG, 1X/DAY
     Route: 048
     Dates: start: 20160625, end: 20160628
  16. LANSOPRAZOLE. [Concomitant]
     Active Substance: LANSOPRAZOLE
  17. TRULICITY [Concomitant]
     Active Substance: DULAGLUTIDE
  18. WARFARIN SODIUM TABLETS USP 5MG [Suspect]
     Active Substance: WARFARIN SODIUM
     Dosage: COMBINATION OF 5 AND 10 MG TO MAKE A 10 AND 15 MG DOSE ON ALTERNATE DAYS
     Dates: start: 20160729
  19. WARFARIN SODIUM TABLETS USP 10MG [Suspect]
     Active Substance: WARFARIN SODIUM
     Indication: HEART VALVE REPLACEMENT
     Dosage: DOSE TOTALLY 10 MG AND 15 MG ALTERNATE DAYS
     Dates: start: 20160729
  20. WARFARIN SODIUM TABLETS USP 5MG [Suspect]
     Active Substance: WARFARIN SODIUM
     Dosage: COMBINATION OF 5 MG AND 10 MG WARFARIN TO MAKE A 10 MG DAILY DOSE
     Dates: start: 20160701, end: 20160724
  21. ASPIRIN. [Suspect]
     Active Substance: ASPIRIN

REACTIONS (2)
  - Rash [Not Recovered/Not Resolved]
  - Pruritus [Not Recovered/Not Resolved]

NARRATIVE: CASE EVENT DATE: 201606
